FAERS Safety Report 10474537 (Version 3)
Quarter: 2014Q4

REPORT INFORMATION
  Report Type: Spontaneous
  Country: US (occurrence: US)
  Receive Date: 20140924
  Receipt Date: 20141103
  Transmission Date: 20150528
  Serious: Yes (Hospitalization, Other)
  Sender: FDA-Public Use
  Company Number: US-AMGEN-USASP2011061686

PATIENT
  Age: 66 Year
  Sex: Female

DRUGS (1)
  1. ENBREL [Suspect]
     Active Substance: ETANERCEPT
     Indication: RHEUMATOID ARTHRITIS
     Dosage: 50 MG, QWK
     Route: 065
     Dates: start: 20010101

REACTIONS (15)
  - Joint injury [Recovered/Resolved]
  - Cartilage injury [Recovered/Resolved]
  - Swelling [Recovered/Resolved]
  - Tremor [Recovered/Resolved]
  - Glaucoma [Not Recovered/Not Resolved]
  - Periodontal disease [Recovered/Resolved]
  - Peripheral swelling [Not Recovered/Not Resolved]
  - Joint destruction [Recovered/Resolved]
  - Tooth infection [Recovered/Resolved]
  - Cataract [Recovered/Resolved]
  - Intraocular lens implant [Recovered/Resolved]
  - Condition aggravated [Recovered/Resolved]
  - Finger deformity [Not Recovered/Not Resolved]
  - Arthralgia [Recovered/Resolved]
  - Fall [Recovered/Resolved]

NARRATIVE: CASE EVENT DATE: 2009
